FAERS Safety Report 5579197-6 (Version None)
Quarter: 2008Q1

REPORT INFORMATION
  Report Type: 
  Country: None (occurrence: None)
  Receive Date: 20080102
  Receipt Date: 20071221
  Transmission Date: 20080703
  Serious: Yes (Other)
  Sender: FDA-Public Use
  Company Number: B0498700A

PATIENT
  Sex: Male
  Weight: 70 kg

DRUGS (1)
  1. AUGMENTIN '125' [Suspect]
     Route: 048
     Dates: start: 20071020, end: 20071125

REACTIONS (4)
  - ABDOMINAL DISTENSION [None]
  - ANOREXIA [None]
  - HEPATITIS TOXIC [None]
  - NAUSEA [None]
